FAERS Safety Report 6313525-9 (Version None)
Quarter: 2009Q3

REPORT INFORMATION
  Report Type: 
  Country: None (occurrence: None)
  Receive Date: 20090814
  Receipt Date: 20090814
  Transmission Date: 20100115
  Serious: Yes (Other)
  Sender: FDA-Public Use
  Company Number: None

PATIENT
  Age: 56 Year
  Sex: Female
  Weight: 58.9676 kg

DRUGS (1)
  1. TOPIRAMATE [Suspect]
     Indication: MIGRAINE PROPHYLAXIS
     Dosage: 50 MG 2 X DAILY PO
     Route: 048
     Dates: start: 20090501, end: 20090813

REACTIONS (3)
  - DRUG INEFFECTIVE [None]
  - MIGRAINE [None]
  - PRODUCT SUBSTITUTION ISSUE [None]
